FAERS Safety Report 8553303-3 (Version None)
Quarter: 2012Q3

REPORT INFORMATION
  Report Type: 
  Country: None (occurrence: None)
  Receive Date: 20120731
  Receipt Date: 20120723
  Transmission Date: 20120928
  Serious: Yes (Hospitalization, Other)
  Sender: FDA-Public Use
  Company Number: JP-AMGEN-JPNSP2012024387

PATIENT
  Age: 76 Year
  Sex: Female
  Weight: 61.8 kg

DRUGS (8)
  1. JUVELA                             /00110502/ [Concomitant]
     Indication: HYPOVITAMINOSIS
     Dosage: 300 MG, 1X/DAY
     Route: 048
     Dates: start: 20101101
  2. ENBREL [Suspect]
     Indication: RHEUMATOID ARTHRITIS
     Dosage: 25 MG, WEEKLY
     Route: 058
     Dates: start: 20110617, end: 20111021
  3. EPADEL                             /01682401/ [Concomitant]
     Indication: BLOOD CHOLESTEROL INCREASED
     Dosage: 900 MG, 1X/DAY
     Route: 048
     Dates: start: 20101101
  4. VITAMEDIN                          /00176001/ [Concomitant]
     Indication: HYPOVITAMINOSIS
     Dosage: 75 MG, 1X/DAY
     Route: 048
     Dates: start: 20101101
  5. RHEUMATREX [Suspect]
     Indication: RHEUMATOID ARTHRITIS
     Dosage: 6 MG, WEEKLY
     Route: 048
     Dates: start: 20101101, end: 20111021
  6. LORCAM [Concomitant]
     Indication: ANALGESIC THERAPY
     Dosage: 12 MG, 1X/DAY
     Route: 048
     Dates: start: 20101101
  7. METHOTREXATE SODIUM [Concomitant]
     Indication: RHEUMATOID ARTHRITIS
     Dosage: 6 MG, WEEKLY
     Route: 048
  8. ANPLAG [Concomitant]
     Indication: POOR PERIPHERAL CIRCULATION
     Dosage: 300 MG, 1X/DAY
     Route: 048
     Dates: start: 20101101

REACTIONS (2)
  - INTERSTITIAL LUNG DISEASE [None]
  - RHEUMATOID ARTHRITIS [None]
